FAERS Safety Report 19933963 (Version 1)
Quarter: 2021Q4

REPORT INFORMATION
  Report Type: Spontaneous
  Country: GR (occurrence: GR)
  Receive Date: 20211008
  Receipt Date: 20211008
  Transmission Date: 20220303
  Serious: Yes (Other)
  Sender: FDA-Public Use
  Company Number: GR-002147023-NVSC2021GR209602

PATIENT
  Age: 58 Year
  Sex: Male

DRUGS (24)
  1. DEXAMETHASONE [Suspect]
     Active Substance: DEXAMETHASONE
     Indication: Plasma cell myeloma
     Dosage: 20 UNK
     Route: 048
     Dates: start: 20180216, end: 20180227
  2. DEXAMETHASONE [Suspect]
     Active Substance: DEXAMETHASONE
     Dosage: 20 UNK
     Route: 048
     Dates: start: 20180126, end: 20180206
  3. DEXAMETHASONE [Suspect]
     Active Substance: DEXAMETHASONE
     Dosage: 20 UNK
     Route: 048
     Dates: start: 20180518
  4. DEXAMETHASONE [Suspect]
     Active Substance: DEXAMETHASONE
     Dosage: 20 UNK
     Route: 048
     Dates: start: 20180330, end: 20180411
  5. DEXAMETHASONE [Suspect]
     Active Substance: DEXAMETHASONE
     Dosage: 20 UNK
     Route: 048
     Dates: start: 20180309, end: 20180320
  6. DEXAMETHASONE [Suspect]
     Active Substance: DEXAMETHASONE
     Dosage: 20 UNK
     Route: 048
     Dates: start: 20180423, end: 20180504
  7. FARYDAK [Suspect]
     Active Substance: PANOBINOSTAT
     Indication: Plasma cell myeloma
     Dosage: 20 UNK
     Route: 048
     Dates: start: 20180423, end: 20180504
  8. FARYDAK [Suspect]
     Active Substance: PANOBINOSTAT
     Dosage: 20 UNK
     Route: 048
     Dates: start: 20180309, end: 20180320
  9. FARYDAK [Suspect]
     Active Substance: PANOBINOSTAT
     Dosage: 20 UNK
     Route: 048
     Dates: start: 20180330, end: 20180411
  10. FARYDAK [Suspect]
     Active Substance: PANOBINOSTAT
     Dosage: 20 UNK
     Route: 048
     Dates: start: 20180518
  11. FARYDAK [Suspect]
     Active Substance: PANOBINOSTAT
     Dosage: 20 UNK
     Route: 048
     Dates: start: 20180216, end: 20180227
  12. FARYDAK [Suspect]
     Active Substance: PANOBINOSTAT
     Dosage: 20 UNK
     Route: 048
     Dates: start: 20180126, end: 20180206
  13. BORTEZOMIB [Suspect]
     Active Substance: BORTEZOMIB
     Indication: Plasma cell myeloma
     Dosage: 2.5 UNK
     Route: 042
     Dates: start: 20180423, end: 20180504
  14. BORTEZOMIB [Suspect]
     Active Substance: BORTEZOMIB
     Dosage: 2.5 UNK
     Route: 042
     Dates: start: 20210518
  15. BORTEZOMIB [Suspect]
     Active Substance: BORTEZOMIB
     Dosage: 2.5 UNK
     Route: 042
     Dates: start: 20180309, end: 20180319
  16. BORTEZOMIB [Suspect]
     Active Substance: BORTEZOMIB
     Dosage: 2.5 UNK
     Route: 042
     Dates: start: 20180126, end: 20180206
  17. BORTEZOMIB [Suspect]
     Active Substance: BORTEZOMIB
     Dosage: 2.5 UNK
     Route: 042
     Dates: start: 20180330, end: 20180410
  18. BORTEZOMIB [Suspect]
     Active Substance: BORTEZOMIB
     Dosage: 2.5 UNK
     Route: 042
     Dates: start: 20180216, end: 20180226
  19. VALTREX [Concomitant]
     Active Substance: VALACYCLOVIR HYDROCHLORIDE
     Indication: Prophylaxis
     Dosage: UNK
     Dates: start: 20070203
  20. ACETAMINOPHEN\CODEINE PHOSPHATE [Concomitant]
     Active Substance: ACETAMINOPHEN\CODEINE PHOSPHATE
     Indication: Bone pain
     Dosage: UNK
     Dates: start: 20171114
  21. ASPIRIN [Concomitant]
     Active Substance: ASPIRIN
     Indication: Thrombosis prophylaxis
     Dosage: UNK
     Dates: start: 20120620
  22. SULFAMETHOXAZOLE\TRIMETHOPRIM [Concomitant]
     Active Substance: SULFAMETHOXAZOLE\TRIMETHOPRIM
     Indication: Prophylaxis
     Dosage: UNK
     Dates: start: 20070203
  23. PENRAZOL [Concomitant]
     Indication: Gastrooesophageal reflux prophylaxis
     Dosage: UNK
     Dates: start: 20070203
  24. LEVOFLOXACIN [Concomitant]
     Active Substance: LEVOFLOXACIN
     Indication: Prophylaxis
     Dosage: UNK
     Dates: start: 20180126

REACTIONS (3)
  - Respiratory tract infection [Recovered/Resolved]
  - Fatigue [Not Recovered/Not Resolved]
  - Rhinorrhoea [Recovered/Resolved]

NARRATIVE: CASE EVENT DATE: 20180220
